FAERS Safety Report 12072107 (Version 2)
Quarter: 2016Q3

REPORT INFORMATION
  Report Type: Spontaneous
  Country: US (occurrence: US)
  Receive Date: 20160212
  Receipt Date: 20160728
  Transmission Date: 20161109
  Serious: Yes (Hospitalization)
  Sender: FDA-Public Use
  Company Number: US-BEH-2016058688

PATIENT
  Sex: Female
  Weight: 68.4 kg

DRUGS (31)
  1. HIZENTRA [Suspect]
     Active Substance: HUMAN IMMUNOGLOBULIN G
     Route: 058
  2. EPIPEN [Concomitant]
     Active Substance: EPINEPHRINE
  3. DURAGESIC [Concomitant]
     Active Substance: FENTANYL
  4. XANAX [Concomitant]
     Active Substance: ALPRAZOLAM
  5. COLCRYS [Concomitant]
     Active Substance: COLCHICINE
  6. VITAMIN B6 [Concomitant]
     Active Substance: PYRIDOXINE HYDROCHLORIDE
  7. ACETAMINOPHEN. [Concomitant]
     Active Substance: ACETAMINOPHEN
  8. DIPHENHYDRAMINE. [Concomitant]
     Active Substance: DIPHENHYDRAMINE
  9. FORTEO [Concomitant]
     Active Substance: TERIPARATIDE
  10. CEFUROXIME AXETIL. [Concomitant]
     Active Substance: CEFUROXIME AXETIL
  11. DIGESTIVE ENZYME [Concomitant]
     Active Substance: UNSPECIFIED INGREDIENT
  12. INFED [Concomitant]
     Active Substance: IRON DEXTRAN
  13. VITAMIN C [Concomitant]
     Active Substance: ASCORBIC ACID
  14. PROMETHAZINE [Concomitant]
     Active Substance: PROMETHAZINE\PROMETHAZINE HYDROCHLORIDE
  15. PYRIDIUM [Concomitant]
     Active Substance: PHENAZOPYRIDINE
  16. SYNTHROID [Concomitant]
     Active Substance: LEVOTHYROXINE SODIUM
  17. HYDROCORTISONE. [Concomitant]
     Active Substance: HYDROCORTISONE
  18. SYNTHROID [Concomitant]
     Active Substance: LEVOTHYROXINE SODIUM
  19. VAGIFEM [Concomitant]
     Active Substance: ESTRADIOL
  20. LIDOCAINE/PRILOCAINE [Concomitant]
     Active Substance: LIDOCAINE\PRILOCAINE
  21. VALTREX [Concomitant]
     Active Substance: VALACYCLOVIR HYDROCHLORIDE
  22. AMBIEN [Concomitant]
     Active Substance: ZOLPIDEM TARTRATE
  23. GINGER. [Concomitant]
     Active Substance: GINGER
  24. PEPCID [Concomitant]
     Active Substance: FAMOTIDINE
  25. HIZENTRA [Suspect]
     Active Substance: HUMAN IMMUNOGLOBULIN G
     Indication: COMBINED IMMUNODEFICIENCY
     Route: 058
  26. MACROBID [Concomitant]
     Active Substance: NITROFURANTOIN\NITROFURANTOIN MONOHYDRATE
  27. OXYCODONE [Concomitant]
     Active Substance: OXYCODONE
  28. PERCOCET [Concomitant]
     Active Substance: ACETAMINOPHEN\OXYCODONE HYDROCHLORIDE
  29. PREDNISONE. [Concomitant]
     Active Substance: PREDNISONE
  30. FLEXERIL [Concomitant]
     Active Substance: CYCLOBENZAPRINE HYDROCHLORIDE
  31. PROBIOTIC [Concomitant]
     Active Substance: PROBIOTICS NOS

REACTIONS (3)
  - Spinal fracture [Unknown]
  - Fall [Unknown]
  - Osteomyelitis [Unknown]
